FAERS Safety Report 5632108-7 (Version None)
Quarter: 2008Q1

REPORT INFORMATION
  Report Type: 
  Country: None (occurrence: None)
  Receive Date: 20080220
  Receipt Date: 20080212
  Transmission Date: 20080703
  Serious: Yes (Hospitalization)
  Sender: FDA-Public Use
  Company Number: B0508641A

PATIENT
  Sex: Female

DRUGS (4)
  1. DEROXAT [Suspect]
     Indication: DRUG USE FOR UNKNOWN INDICATION
     Route: 048
  2. AVASTIN [Suspect]
     Indication: BREAST NEOPLASM
     Dosage: 280MG WEEKLY
     Route: 042
     Dates: start: 20070926, end: 20071108
  3. TAXOL [Suspect]
     Indication: BREAST NEOPLASM
     Dosage: 135MG WEEKLY
     Route: 042
     Dates: start: 20070929
  4. ATARAX [Suspect]
     Route: 048

REACTIONS (2)
  - DYSPHAGIA [None]
  - OESOPHAGEAL STENOSIS [None]
